FAERS Safety Report 18980170 (Version 1)
Quarter: 2021Q1

REPORT INFORMATION
  Report Type: Spontaneous
  Country: US (occurrence: US)
  Receive Date: 20210305
  Receipt Date: 20210305
  Transmission Date: 20210420
  Serious: No
  Sender: FDA-Public Use
  Company Number: None

PATIENT
  Age: 54 Year
  Sex: Male

DRUGS (1)
  1. BIKTARVY [Suspect]
     Active Substance: BICTEGRAVIR SODIUM\EMTRICITABINE\TENOFOVIR ALAFENAMIDE FUMARATE
     Indication: HIV INFECTION
     Dosage: ?          OTHER STRENGTH:50/200/25M;OTHER DOSE:50/200/25MG;?
     Route: 048
     Dates: start: 20201201

REACTIONS (2)
  - Weight increased [None]
  - Thyroid disorder [None]

NARRATIVE: CASE EVENT DATE: 20210101
